FAERS Safety Report 11101702 (Version 2)
Quarter: 2015Q2

REPORT INFORMATION
  Report Type: Spontaneous
  Country: FR (occurrence: FR)
  Receive Date: 20150508
  Receipt Date: 20150527
  Transmission Date: 20150821
  Serious: Yes (Hospitalization, Other)
  Sender: FDA-Public Use
  Company Number: PHHY2015FR056047

PATIENT
  Age: 64 Year
  Sex: Female

DRUGS (2)
  1. LEPONEX [Suspect]
     Active Substance: CLOZAPINE
     Indication: ABNORMAL BEHAVIOUR
  2. LEPONEX [Suspect]
     Active Substance: CLOZAPINE
     Indication: CHILDHOOD PSYCHOSIS
     Dosage: 4 DF, QD (THREE TIMES DAILY AS 1 DF IN MORNING, 1DF AT NOON AND 2 DF IN EVENING)
     Route: 048
     Dates: start: 2007, end: 20150304

REACTIONS (3)
  - Pyelonephritis [Unknown]
  - Lung disorder [Unknown]
  - Off label use [Unknown]
